FAERS Safety Report 5932547-0 (Version None)
Quarter: 2008Q4

REPORT INFORMATION
  Report Type: 
  Country: None (occurrence: None)
  Receive Date: 20081028
  Receipt Date: 20081015
  Transmission Date: 20090506
  Serious: Yes (Other)
  Sender: FDA-Public Use
  Company Number: US-BAYER-200836007NA

PATIENT
  Age: 35 Year
  Sex: Female
  Weight: 98 kg

DRUGS (2)
  1. YAZ [Suspect]
     Indication: OVARIAN CYST
     Dosage: TOTAL DAILY DOSE: 1 DF
     Route: 048
  2. NORVASC [Concomitant]
     Route: 048

REACTIONS (4)
  - DERMOID CYST [None]
  - HYPOMENORRHOEA [None]
  - METRORRHAGIA [None]
  - WEIGHT INCREASED [None]
